FAERS Safety Report 17759189 (Version 1)
Quarter: 2020Q2

REPORT INFORMATION
  Report Type: Spontaneous
  Country: PL (occurrence: PL)
  Receive Date: 20200508
  Receipt Date: 20200508
  Transmission Date: 20200714
  Serious: Yes (Hospitalization)
  Sender: FDA-Public Use
  Company Number: PL-TEVA-2020-PL-1230861

PATIENT
  Age: 21 Year
  Sex: Female
  Weight: 65 kg

DRUGS (1)
  1. CLINDAMYCIN - TABLET [Suspect]
     Active Substance: CLINDAMYCIN
     Indication: PHARYNGOTONSILLITIS
     Route: 048
     Dates: start: 20170614, end: 20170619

REACTIONS (3)
  - Rash papular [Recovered/Resolved]
  - Pruritus [Recovered/Resolved]
  - Erythema [Recovered/Resolved]

NARRATIVE: CASE EVENT DATE: 20170620
